FAERS Safety Report 4948099-8 (Version None)
Quarter: 2006Q1

REPORT INFORMATION
  Report Type: 
  Country: None (occurrence: None)
  Receive Date: 20060320
  Receipt Date: 20000322
  Transmission Date: 20060701
  Serious: Yes (Hospitalization, Other)
  Sender: FDA-Public Use
  Company Number: US-MERCK-00032268

PATIENT
  Age: 52 Year
  Sex: Female
  Weight: 74 kg

DRUGS (19)
  1. ZOCOR [Concomitant]
     Route: 048
  2. AMARYL [Concomitant]
     Route: 065
  3. IMDUR [Concomitant]
     Route: 065
  4. COREG [Concomitant]
     Route: 065
  5. POTASSIUM CHLORIDE [Concomitant]
     Route: 065
  6. LASIX [Concomitant]
     Route: 065
  7. PRILOSEC [Concomitant]
     Route: 065
  8. DIOVAN HCT [Concomitant]
     Route: 065
  9. VIOXX [Suspect]
     Indication: PROCEDURAL PAIN
     Route: 048
     Dates: start: 20000209
  10. SYNTHROID [Concomitant]
     Route: 048
  11. PREMARIN [Concomitant]
     Route: 048
  12. ASPIRIN [Concomitant]
     Route: 065
  13. IRON (UNSPECIFIED) [Concomitant]
     Route: 065
  14. [THERAPY UNSPECIFIED] [Concomitant]
     Indication: CYSTITIS
     Route: 065
     Dates: start: 19991101
  15. ASPIRIN [Concomitant]
     Route: 048
  16. METOPROLOL [Concomitant]
     Route: 048
  17. LESCOL XL [Concomitant]
     Route: 065
  18. HYDROXYZINE HYDROCHLORIDE AND MEPERIDINE HYDROCHLORIDE [Concomitant]
     Route: 065
  19. ZAROXOLYN [Concomitant]
     Route: 065

REACTIONS (13)
  - CARDIAC FAILURE CONGESTIVE [None]
  - CHEST PAIN [None]
  - DEHYDRATION [None]
  - DIABETES MELLITUS NON-INSULIN-DEPENDENT [None]
  - DIZZINESS [None]
  - HYPERGLYCAEMIA [None]
  - HYPERLIPIDAEMIA [None]
  - IRRITABILITY [None]
  - MEDICATION ERROR [None]
  - MYOCARDIAL INFARCTION [None]
  - OEDEMA [None]
  - URINARY TRACT INFECTION [None]
  - WEIGHT INCREASED [None]
